FAERS Safety Report 10049342 (Version 2)
Quarter: 2014Q2

REPORT INFORMATION
  Report Type: Spontaneous
  Country: US (occurrence: US)
  Receive Date: 20140401
  Receipt Date: 20140416
  Transmission Date: 20141212
  Serious: No
  Sender: FDA-Public Use
  Company Number: US-009507513-1403USA014072

PATIENT
  Sex: 0

DRUGS (2)
  1. NEXPLANON [Suspect]
     Dosage: 1 ROD, INTENDED FOR 3 YEARS, INSERTION FAILED
     Route: 059
     Dates: start: 20140228, end: 20140228
  2. NEXPLANON [Suspect]
     Dosage: 1 ROD /3YEARS
     Route: 059
     Dates: start: 2014

REACTIONS (4)
  - Device deployment issue [Recovered/Resolved]
  - Device difficult to use [Recovered/Resolved]
  - No adverse event [Unknown]
  - Product quality issue [Unknown]
